FAERS Safety Report 9652169 (Version 1)
Quarter: 2013Q4

REPORT INFORMATION
  Report Type: Spontaneous
  Country: US (occurrence: None)
  Receive Date: 20131028
  Receipt Date: 20131028
  Transmission Date: 20140711
  Serious: No
  Sender: FDA-Public Use
  Company Number: None

PATIENT
  Age: 43 Year
  Sex: Female
  Weight: 59.88 kg

DRUGS (2)
  1. MIRVASO 0.33% GALDERMA [Suspect]
     Indication: FLUSHING
     Dosage: ONE PEA-SIZED DROP ONCE DAILY APPLIED TO A SURFACE, USUALLY THE SKIN
     Dates: start: 20131014, end: 20131024
  2. MIRVASO 0.33% GALDERMA [Suspect]
     Indication: ROSACEA
     Dosage: ONE PEA-SIZED DROP ONCE DAILY APPLIED TO A SURFACE, USUALLY THE SKIN
     Dates: start: 20131014, end: 20131024

REACTIONS (2)
  - Hot flush [None]
  - Erythema [None]
